FAERS Safety Report 25075858 (Version 1)
Quarter: 2025Q1

REPORT INFORMATION
  Report Type: Spontaneous
  Country: DE (occurrence: DE)
  Receive Date: 20250313
  Receipt Date: 20250313
  Transmission Date: 20250409
  Serious: Yes (Other)
  Sender: ALK-ABELLO
  Company Number: DE-ALK-ABELLO A/S-2025AA000977

PATIENT

DRUGS (2)
  1. GRAZAX [Suspect]
     Active Substance: PHLEUM PRATENSE POLLEN
     Indication: Product used for unknown indication
     Route: 060
  2. BETULA PENDULA POLLEN [Suspect]
     Active Substance: BETULA PENDULA POLLEN
     Indication: Product used for unknown indication
     Route: 060

REACTIONS (1)
  - Sjogren^s syndrome [Not Recovered/Not Resolved]
